FAERS Safety Report 25044507 (Version 5)
Quarter: 2025Q2

REPORT INFORMATION
  Report Type: Report from Study
  Country: US (occurrence: US)
  Receive Date: 20250306
  Receipt Date: 20250517
  Transmission Date: 20250716
  Serious: Yes (Hospitalization, Other)
  Sender: ROCHE
  Company Number: US-ROCHE-10000221570

PATIENT
  Age: 43 Year
  Sex: Female

DRUGS (2)
  1. RITUXAN [Suspect]
     Active Substance: RITUXIMAB
     Indication: Lupus nephritis
     Route: 065
  2. CELLCEPT [Suspect]
     Active Substance: MYCOPHENOLATE MOFETIL
     Indication: Lupus nephritis
     Route: 065

REACTIONS (15)
  - Coma [Unknown]
  - Renal failure [Unknown]
  - Dry mouth [Unknown]
  - Cushingoid [Unknown]
  - Fatigue [Unknown]
  - Pain [Unknown]
  - Alopecia [Unknown]
  - Rash [Unknown]
  - Rheumatoid arthritis [Unknown]
  - Infection [Unknown]
  - Off label use [Unknown]
  - Depression [Unknown]
  - Amnesia [Unknown]
  - Raynaud^s phenomenon [Unknown]
  - Lupus nephritis [Unknown]
